FAERS Safety Report 20143569 (Version 1)
Quarter: 2021Q4

REPORT INFORMATION
  Report Type: Report from Study
  Country: CN (occurrence: CN)
  Receive Date: 20211203
  Receipt Date: 20211203
  Transmission Date: 20220303
  Serious: Yes (Hospitalization, Other)
  Sender: FDA-Public Use
  Company Number: CN-AUROBINDO-AUR-APL-2021-006013

PATIENT
  Age: 34 Year
  Sex: Female
  Weight: 67 kg

DRUGS (10)
  1. EVOMELA [Suspect]
     Active Substance: MELPHALAN HYDROCHLORIDE
     Indication: Plasma cell myeloma
     Dosage: 170 MILLIGRAM, ONCE A DAY
     Route: 042
     Dates: start: 20201208, end: 20201209
  2. GRANULOCYTE COLONY-STIMULATING FACTOR NOS [Concomitant]
     Active Substance: GRANULOCYTE COLONY-STIMULATING FACTOR NOS
     Indication: White blood cell count increased
     Dosage: 167.5 MICROGRAM, TWO TIMES A DAY
     Route: 042
     Dates: start: 20201215, end: 20201222
  3. GRANULOCYTE COLONY-STIMULATING FACTOR NOS [Concomitant]
     Active Substance: GRANULOCYTE COLONY-STIMULATING FACTOR NOS
     Dosage: 167.5 MICROGRAM
     Route: 042
     Dates: start: 20201224, end: 20201224
  4. GRANULOCYTE COLONY-STIMULATING FACTOR NOS [Concomitant]
     Active Substance: GRANULOCYTE COLONY-STIMULATING FACTOR NOS
     Dosage: 167.5 MICROGRAM
     Route: 042
     Dates: start: 20201228, end: 20201228
  5. CEFATHIAMIDINE [Concomitant]
     Active Substance: CEFATHIAMIDINE
     Indication: Anti-infective therapy
     Dosage: 1 GRAM, 3 TIMES A DAY
     Route: 042
     Dates: start: 20210123
  6. GLUTATHIONE [Concomitant]
     Active Substance: GLUTATHIONE
     Indication: Hepatic steatosis
     Dosage: 2.7 GRAM, TWO TIMES A DAY
     Route: 042
  7. INCADRONATE DISODIUM [Concomitant]
     Active Substance: INCADRONATE DISODIUM
     Indication: Analgesic therapy
     Dosage: 10 MILLIGRAM, EVERY WEEK
     Route: 042
     Dates: start: 20210123
  8. AMOXICILLIN [Concomitant]
     Active Substance: AMOXICILLIN
     Indication: Anti-infective therapy
     Dosage: 0.50 GRAM 2 BOXES
     Dates: start: 20210125
  9. BICYCLOL [Concomitant]
     Active Substance: BICYCLOL
     Indication: Hepatic steatosis
     Dosage: 50 MILLIGRAM 2 BOXES
     Dates: start: 20210125
  10. CALCIUM\CHOLECALCIFEROL [Concomitant]
     Active Substance: CALCIUM\CHOLECALCIFEROL
     Indication: Mineral supplementation
     Dosage: 600 MILLIGRAM
     Dates: start: 20210125

REACTIONS (16)
  - Liver function test abnormal [Recovered/Resolved]
  - Hypokalaemia [Recovered/Resolved]
  - Blood lactate dehydrogenase increased [Recovered/Resolved]
  - Hypophosphataemia [Recovering/Resolving]
  - Hyponatraemia [Recovered/Resolved]
  - Hypomagnesaemia [Recovered/Resolved]
  - Hypocalcaemia [Recovered/Resolved]
  - Hepatic function abnormal [Recovered/Resolved]
  - White blood cells urine positive [Recovered/Resolved]
  - Nausea [Recovered/Resolved]
  - Vomiting [Recovered/Resolved]
  - Diarrhoea [Not Recovered/Not Resolved]
  - Hypersensitivity [Recovered/Resolved]
  - C-reactive protein increased [Recovered/Resolved]
  - Decreased appetite [Recovered/Resolved]
  - Swollen tongue [Recovered/Resolved]

NARRATIVE: CASE EVENT DATE: 20201206
